FAERS Safety Report 5925903-8 (Version None)
Quarter: 2008Q4

REPORT INFORMATION
  Report Type: 
  Country: None (occurrence: None)
  Receive Date: 20081021
  Receipt Date: 20081015
  Transmission Date: 20090506
  Serious: Yes (Life-Threatening, Hospitalization, Disabling)
  Sender: FDA-Public Use
  Company Number: DE-ABBOTT-08P-062-0480356-00

PATIENT
  Age: 38 Year
  Sex: Male

DRUGS (12)
  1. ERGENYL CHRONO TABLETS [Suspect]
     Indication: DRUG USE FOR UNKNOWN INDICATION
     Dates: start: 20061011, end: 20061022
  2. EUNERPAN [Suspect]
     Indication: SCHIZOPHRENIA, DISORGANISED TYPE
     Dates: start: 20061021, end: 20061022
  3. EUNERPAN [Suspect]
     Indication: MENTAL DISORDER
  4. EUNERPAN [Suspect]
     Indication: CONDUCT DISORDER
  5. LORAZEPAM [Interacting]
     Indication: DRUG USE FOR UNKNOWN INDICATION
     Dates: end: 20061022
  6. LORAZEPAM [Interacting]
     Dates: start: 20061022, end: 20061022
  7. LORAZEPAM [Interacting]
     Route: 042
     Dates: start: 20061022, end: 20061022
  8. HALOPERIDOL [Interacting]
     Indication: DRUG USE FOR UNKNOWN INDICATION
  9. AMISULPRIDE [Interacting]
     Indication: DRUG USE FOR UNKNOWN INDICATION
     Dates: start: 20061009, end: 20061020
  10. AMISULPRIDE [Interacting]
     Dates: start: 20061021, end: 20061022
  11. CARBAMAZEPINE [Interacting]
     Indication: DRUG USE FOR UNKNOWN INDICATION
     Dates: start: 20061021, end: 20061022
  12. CLOZAPINE [Concomitant]
     Indication: DRUG USE FOR UNKNOWN INDICATION
     Dates: end: 20061008

REACTIONS (6)
  - CARDIAC ARREST [None]
  - DRUG INTERACTION [None]
  - DYSPHAGIA [None]
  - ELECTROLYTE IMBALANCE [None]
  - ENURESIS [None]
  - HYPERVENTILATION [None]
